FAERS Safety Report 8224820-0 (Version None)
Quarter: 2012Q1

REPORT INFORMATION
  Report Type: 
  Country: None (occurrence: None)
  Receive Date: 20120319
  Receipt Date: 20120312
  Transmission Date: 20120608
  Serious: Yes (Other)
  Sender: FDA-Public Use
  Company Number: 2012MA003335

PATIENT
  Age: 72 Year
  Sex: Male

DRUGS (10)
  1. CITALOPRAM HYDROBROMIDE [Concomitant]
  2. CODEINE [Concomitant]
  3. AMITRIPTYLINE HCL [Concomitant]
  4. LEVETIRACETAM [Suspect]
     Indication: CONVULSION
     Dosage: 250 MG, BID
  5. DIGOXIN [Concomitant]
  6. LEVETIRACETAM [Suspect]
     Indication: CONVULSION
     Dosage: 250 MG, BID
  7. PUREPAC [Concomitant]
  8. INDAPAMIDE [Concomitant]
  9. SIMVASTATIN [Concomitant]
  10. WARFARIN SODIUM [Concomitant]

REACTIONS (12)
  - MENTAL IMPAIRMENT [None]
  - PSYCHOTIC DISORDER [None]
  - HALLUCINATION [None]
  - PARANOIA [None]
  - INCONTINENCE [None]
  - DEPRESSION [None]
  - GENERAL PHYSICAL HEALTH DETERIORATION [None]
  - HEMIPARESIS [None]
  - SOMNOLENCE [None]
  - MOBILITY DECREASED [None]
  - PERSECUTORY DELUSION [None]
  - DELIRIUM [None]
